FAERS Safety Report 9646146 (Version 1)
Quarter: 2013Q4

REPORT INFORMATION
  Report Type: Spontaneous
  Country: DE (occurrence: None)
  Receive Date: 20131024
  Receipt Date: 20131024
  Transmission Date: 20140711
  Serious: Yes (Life-Threatening, Hospitalization, Other)
  Sender: FDA-Public Use
  Company Number: 2013-003314

PATIENT
  Age: 32 Year
  Sex: Female
  Weight: 95 kg

DRUGS (2)
  1. SARAFEM [Suspect]
     Indication: DEPRESSION
     Route: 048
  2. NIFEDIPIN ( NIFEDIPINE) [Concomitant]

REACTIONS (4)
  - Pre-eclampsia [None]
  - Caesarean section [None]
  - Exposure during pregnancy [None]
  - HELLP syndrome [None]
